FAERS Safety Report 19299885 (Version 1)
Quarter: 2021Q2

REPORT INFORMATION
  Report Type: Spontaneous
  Country: US (occurrence: US)
  Receive Date: 20210524
  Receipt Date: 20210524
  Transmission Date: 20210717
  Serious: Yes (Life-Threatening)
  Sender: FDA-Public Use
  Company Number: None

PATIENT
  Age: 43 Year
  Sex: Female
  Weight: 89.1 kg

DRUGS (16)
  1. PREVACID [Concomitant]
     Active Substance: LANSOPRAZOLE
  2. RASUVO [Concomitant]
     Active Substance: METHOTREXATE SODIUM
  3. MEDROXYPROGESTERONE 150 MG/ML SUSPENSION [Suspect]
     Active Substance: MEDROXYPROGESTERONE ACETATE
     Indication: CONTRACEPTION
     Dosage: ?          QUANTITY:1 INJECTION(S);OTHER FREQUENCY:ONCE EVERY 12 WEEK;?
     Route: 030
     Dates: start: 20210206, end: 20210513
  4. ZYRTEC [Concomitant]
     Active Substance: CETIRIZINE HYDROCHLORIDE
  5. AMITRYPTALINE [Concomitant]
     Active Substance: AMITRIPTYLINE
  6. PREDNISONE. [Concomitant]
     Active Substance: PREDNISONE
  7. ALBUTEROL. [Concomitant]
     Active Substance: ALBUTEROL
  8. ORENCIA [Concomitant]
     Active Substance: ABATACEPT
  9. DEPO?PROVERA [Concomitant]
     Active Substance: MEDROXYPROGESTERONE ACETATE
  10. SINGULAIR [Concomitant]
     Active Substance: MONTELUKAST SODIUM
  11. MULTI VITAMIN [Concomitant]
     Active Substance: VITAMINS
  12. BENADRYL [Concomitant]
     Active Substance: DIPHENHYDRAMINE HYDROCHLORIDE
  13. PLAQUENIL [Concomitant]
     Active Substance: HYDROXYCHLOROQUINE SULFATE
  14. PROCARDIA [Concomitant]
     Active Substance: NIFEDIPINE
  15. BARIATRIC FUSION [Concomitant]
  16. HYDROXYZINE [Concomitant]
     Active Substance: HYDROXYZINE HYDROCHLORIDE

REACTIONS (19)
  - Swelling face [None]
  - Mast cell activation syndrome [None]
  - Joint swelling [None]
  - Erythema [None]
  - Drug ineffective [None]
  - Burning sensation [None]
  - Speech disorder [None]
  - Urticaria [None]
  - Pruritus [None]
  - Therapy interrupted [None]
  - Swelling [None]
  - Post vaccination syndrome [None]
  - Hypersensitivity [None]
  - Lip swelling [None]
  - Swollen tongue [None]
  - Dyspnoea [None]
  - Peripheral swelling [None]
  - Feeling abnormal [None]
  - Flushing [None]

NARRATIVE: CASE EVENT DATE: 20210513
